FAERS Safety Report 7655821-9 (Version None)
Quarter: 2011Q3

REPORT INFORMATION
  Report Type: 
  Country: None (occurrence: None)
  Receive Date: 20110729
  Receipt Date: 20110722
  Transmission Date: 20111222
  Serious: Yes (Other)
  Sender: FDA-Public Use
  Company Number: TW-ACCORD-010061

PATIENT
  Age: 12 Year
  Sex: Male

DRUGS (2)
  1. ETOPOSIDE [Suspect]
     Indication: CNS GERMINOMA
     Dosage: 40.00-MG/M2-1.00 TIMES PER-1.0DAYS
  2. CISPLATIN [Suspect]
     Indication: CNS GERMINOMA
     Dosage: 20.00-MG/M2-1.00 TIMES PER-1.0DAYS

REACTIONS (2)
  - RHABDOMYOSARCOMA [None]
  - OFF LABEL USE [None]
